FAERS Safety Report 5288921-1 (Version None)
Quarter: 2007Q1

REPORT INFORMATION
  Report Type: 
  Country: None (occurrence: None)
  Receive Date: 20070119
  Receipt Date: 20061030
  Transmission Date: 20070707
  Serious: Yes (Hospitalization)
  Sender: FDA-Public Use
  Company Number: BDI-008782

PATIENT
  Age: 69 Year
  Sex: Female

DRUGS (2)
  1. PROHANCE [Suspect]
     Indication: INTERMITTENT CLAUDICATION
     Dosage: 40 ML ONCE IV
     Route: 042
     Dates: start: 20061013, end: 20061013
  2. PROHANCE [Suspect]
     Indication: NUCLEAR MAGNETIC RESONANCE IMAGING
     Dosage: 40 ML ONCE IV
     Route: 042
     Dates: start: 20061013, end: 20061013

REACTIONS (1)
  - ANAPHYLACTIC SHOCK [None]
